FAERS Safety Report 10240402 (Version 1)
Quarter: 2014Q2

REPORT INFORMATION
  Report Type: Spontaneous
  Country: US (occurrence: US)
  Receive Date: 20140617
  Receipt Date: 20140617
  Transmission Date: 20141212
  Serious: No
  Sender: FDA-Public Use
  Company Number: US-BIOGENIDEC-2014BI054884

PATIENT
  Age: 56 Year
  Sex: Male

DRUGS (10)
  1. TECFIDERA [Suspect]
     Indication: MULTIPLE SCLEROSIS
     Route: 048
  2. TRILEPTAL [Concomitant]
  3. PROMETHAZINE HCL [Concomitant]
  4. OXYCONTIN [Concomitant]
  5. OMEPRAZOLE [Concomitant]
  6. METOPROLOL SUCCINATE ER [Concomitant]
  7. MAXALT [Concomitant]
  8. HYDROXYZINE HC [Concomitant]
  9. DIAZEPAM [Concomitant]
  10. BACLOFEN [Concomitant]

REACTIONS (2)
  - Hyperhidrosis [Not Recovered/Not Resolved]
  - Hot flush [Not Recovered/Not Resolved]
